FAERS Safety Report 9964023 (Version 1)
Quarter: 2014Q1

REPORT INFORMATION
  Report Type: Spontaneous
  Country: FR (occurrence: FR)
  Receive Date: 20140305
  Receipt Date: 20140305
  Transmission Date: 20141002
  Serious: Yes (Hospitalization)
  Sender: FDA-Public Use
  Company Number: FR-ASTRAZENECA-2014SE14533

PATIENT
  Age: 21366 Day
  Sex: Female

DRUGS (2)
  1. XEROQUEL [Suspect]
     Route: 048
     Dates: start: 20140120, end: 20140120
  2. ALPRAZOLAM [Suspect]
     Route: 048
     Dates: start: 20140120, end: 20140120

REACTIONS (4)
  - Rhabdomyolysis [Recovering/Resolving]
  - Poisoning [Unknown]
  - Somnolence [Recovered/Resolved]
  - Hypothermia [Unknown]
